FAERS Safety Report 10247590 (Version 1)
Quarter: 2014Q2

REPORT INFORMATION
  Report Type: Spontaneous
  Country: IT (occurrence: None)
  Receive Date: 20140617
  Receipt Date: 20140617
  Transmission Date: 20141212
  Serious: Yes (Hospitalization)
  Sender: FDA-Public Use
  Company Number: 2014STPI000267

PATIENT
  Age: 59 Year
  Sex: Male

DRUGS (4)
  1. MATULANE (PROCARBAZINE HYDROCHLORIDE) CAPSULE, 50MG [Suspect]
     Indication: HODGKIN^S DISEASE
     Route: 048
     Dates: start: 2000, end: 2000
  2. CHLORMETHINE HYDROCHLORIDE [Suspect]
     Indication: HODGKIN^S DISEASE
     Route: 042
     Dates: start: 2000, end: 2000
  3. VINCRISTINE (VINCRISTINE SULFATE) [Suspect]
     Indication: HODGKIN^S DISEASE
     Route: 042
     Dates: start: 2000, end: 2000
  4. PREDNISONE (PREDNISONE) [Suspect]
     Indication: HODGKIN^S DISEASE
     Route: 042
     Dates: start: 2000, end: 2000

REACTIONS (1)
  - Retinal vein thrombosis [None]
